FAERS Safety Report 20826840 (Version 2)
Quarter: 2022Q2

REPORT INFORMATION
  Report Type: Report from Study
  Country: SK (occurrence: SK)
  Receive Date: 20220513
  Receipt Date: 20220525
  Transmission Date: 20220721
  Serious: Yes (Other)
  Sender: FDA-Public Use
  Company Number: SK-PFIZER INC-2021811565

PATIENT
  Age: 38 Year
  Sex: Female
  Weight: 66.5 kg

DRUGS (7)
  1. ABROCITINIB [Suspect]
     Active Substance: ABROCITINIB
     Indication: Dermatitis atopic
     Dosage: ONCE DAILY
     Route: 048
     Dates: start: 20210602, end: 20210624
  2. VENTOLIN [Concomitant]
     Active Substance: ALBUTEROL SULFATE
     Indication: Asthma
     Dosage: INHALER SPRAY
     Dates: start: 2018
  3. FOSTER [Concomitant]
     Active Substance: BECLOMETHASONE\FORMOTEROL
     Indication: Asthma
     Dosage: 200/6 SPRAY
     Dates: start: 2018
  4. DESLORATADINE [Concomitant]
     Active Substance: DESLORATADINE
     Indication: Dermatitis atopic
     Dosage: UNK
     Dates: start: 20180611
  5. DIENORETTE [Concomitant]
     Indication: Contraception
     Dosage: UNK
     Dates: start: 2016
  6. MOMETASONE FUROATE [Concomitant]
     Active Substance: MOMETASONE FUROATE
     Indication: Dermatitis atopic
     Dosage: CRM
     Dates: start: 20201118
  7. OILATUM EMOLLIENT [LIGHT LIQUID PARAFFIN] [Concomitant]
     Indication: Dermatitis atopic
     Dosage: UNK
     Dates: start: 20201006

REACTIONS (1)
  - Thrombocytopenic purpura [Recovered/Resolved]

NARRATIVE: CASE EVENT DATE: 20210623
